FAERS Safety Report 10188994 (Version 1)
Quarter: 2014Q2

REPORT INFORMATION
  Report Type: Spontaneous
  Country: US (occurrence: None)
  Receive Date: 20140521
  Receipt Date: 20140521
  Transmission Date: 20141212
  Serious: Yes (Disabling)
  Sender: FDA-Public Use
  Company Number: None

PATIENT
  Age: 52 Year
  Sex: Female
  Weight: 90.72 kg

DRUGS (1)
  1. SAVELLA [Suspect]
     Indication: FIBROMYALGIA
     Route: 048
     Dates: start: 20140121, end: 20140401

REACTIONS (3)
  - Hepatic enzyme increased [None]
  - Diabetes mellitus [None]
  - Pancreatic disorder [None]
